FAERS Safety Report 13940026 (Version 2)
Quarter: 2017Q3

REPORT INFORMATION
  Report Type: Spontaneous
  Country: US (occurrence: US)
  Receive Date: 20170906
  Receipt Date: 20170911
  Transmission Date: 20171127
  Serious: Yes (Death, Hospitalization)
  Sender: FDA-Public Use
  Company Number: US-STRIDES ARCOLAB LIMITED-2017SP012396

PATIENT

DRUGS (2)
  1. MYCOPHENOLATE MOFETIL. [Suspect]
     Active Substance: MYCOPHENOLATE MOFETIL
     Indication: RENAL TRANSPLANT
     Dosage: UNK
     Route: 065
  2. TACROLIMUS. [Suspect]
     Active Substance: TACROLIMUS
     Indication: RENAL TRANSPLANT
     Dosage: UNK
     Route: 065

REACTIONS (8)
  - Cardiac arrest [Unknown]
  - Staphylococcal infection [Unknown]
  - Staphylococcal bacteraemia [Unknown]
  - Encephalopathy [Unknown]
  - Staphylococcal scalded skin syndrome [Fatal]
  - Sepsis [Fatal]
  - Respiratory failure [Unknown]
  - Septic shock [Unknown]
